FAERS Safety Report 25378386 (Version 1)
Quarter: 2025Q2

REPORT INFORMATION
  Report Type: Spontaneous
  Country: VN (occurrence: VN)
  Receive Date: 20250530
  Receipt Date: 20250530
  Transmission Date: 20250716
  Serious: Yes (Hospitalization)
  Sender: JOHNSON AND JOHNSON
  Company Number: VN-JNJFOC-20250530233

PATIENT
  Age: 15 Year
  Sex: Female

DRUGS (1)
  1. MEBENDAZOLE [Suspect]
     Active Substance: MEBENDAZOLE
     Indication: Infection
     Route: 065

REACTIONS (3)
  - Encephalitis [Unknown]
  - Interstitial lung disease [Unknown]
  - Fatigue [Unknown]
